FAERS Safety Report 18439319 (Version 1)
Quarter: 2020Q4

REPORT INFORMATION
  Report Type: Spontaneous
  Country: US (occurrence: US)
  Receive Date: 20201029
  Receipt Date: 20201029
  Transmission Date: 20210114
  Serious: Yes (Hospitalization, Other)
  Sender: FDA-Public Use
  Company Number: US-DRREDDYS-USA/USA/20/0128402

PATIENT
  Age: 36 Year
  Sex: Female

DRUGS (20)
  1. DEXAMETHASONE SODIUM PHOSPHATE INJECTION, 4 MG/ML [Concomitant]
     Active Substance: DEXAMETHASONE SODIUM PHOSPHATE
     Indication: TRANSFUSION REACTION
  2. PEPCID [Concomitant]
     Active Substance: FAMOTIDINE
     Indication: ANAPHYLACTIC SHOCK
  3. REMDESIVIR. [Concomitant]
     Active Substance: REMDESIVIR
     Indication: ACUTE RESPIRATORY FAILURE
  4. DEXAMETHASONE SODIUM PHOSPHATE INJECTION, 4 MG/ML [Concomitant]
     Active Substance: DEXAMETHASONE SODIUM PHOSPHATE
     Indication: ANAPHYLACTIC SHOCK
     Route: 065
  5. BENADRYL [Concomitant]
     Active Substance: DIPHENHYDRAMINE HYDROCHLORIDE
     Indication: ANAPHYLACTIC SHOCK
  6. SALINE [Concomitant]
     Active Substance: SODIUM CHLORIDE
     Indication: ANAPHYLACTIC SHOCK
     Dosage: BOLUS
     Route: 040
  7. CEFTRIAXONE. [Concomitant]
     Active Substance: CEFTRIAXONE
     Indication: ACUTE RESPIRATORY FAILURE
  8. SALINE [Concomitant]
     Active Substance: SODIUM CHLORIDE
     Indication: TRANSFUSION REACTION
  9. EPINEPHRINE. [Concomitant]
     Active Substance: EPINEPHRINE
     Indication: TRANSFUSION REACTION
  10. LEVOPHED [Concomitant]
     Active Substance: NOREPINEPHRINE BITARTRATE
     Indication: TRANSFUSION REACTION
     Dosage: DRIP
     Route: 041
  11. LEVOPHED [Concomitant]
     Active Substance: NOREPINEPHRINE BITARTRATE
     Indication: ANAPHYLACTIC SHOCK
  12. PEPCID [Concomitant]
     Active Substance: FAMOTIDINE
     Indication: TRANSFUSION REACTION
  13. AZITHROMYCIN ANHYDROUS. [Concomitant]
     Active Substance: AZITHROMYCIN ANHYDROUS
     Indication: ACUTE RESPIRATORY FAILURE
  14. REMDESIVIR. [Concomitant]
     Active Substance: REMDESIVIR
     Indication: COVID-19
  15. HEPARIN SODIUM. [Suspect]
     Active Substance: HEPARIN SODIUM
     Indication: PERIPARTUM CARDIOMYOPATHY
  16. HEPARIN SODIUM. [Suspect]
     Active Substance: HEPARIN SODIUM
     Indication: VIRAL CARDIOMYOPATHY
     Dosage: DRIP
     Route: 041
  17. BENADRYL [Concomitant]
     Active Substance: DIPHENHYDRAMINE HYDROCHLORIDE
     Indication: TRANSFUSION REACTION
  18. EPINEPHRINE. [Concomitant]
     Active Substance: EPINEPHRINE
     Indication: ANAPHYLACTIC SHOCK
  19. CEFTRIAXONE. [Concomitant]
     Active Substance: CEFTRIAXONE
     Indication: COVID-19
     Route: 065
  20. AZITHROMYCIN ANHYDROUS. [Concomitant]
     Active Substance: AZITHROMYCIN ANHYDROUS
     Indication: COVID-19

REACTIONS (1)
  - Haemoglobin decreased [Unknown]
